FAERS Safety Report 19821534 (Version 1)
Quarter: 2021Q3

REPORT INFORMATION
  Report Type: Spontaneous
  Country: US (occurrence: US)
  Receive Date: 20210910
  Receipt Date: 20210910
  Transmission Date: 20211014
  Serious: No
  Sender: FDA-Public Use
  Company Number: None

PATIENT
  Age: 78 Year
  Sex: Male
  Weight: 97 kg

DRUGS (1)
  1. IBRUTINIB (IBRUTINIB 140MG CAP, ORAL) [Suspect]
     Active Substance: IBRUTINIB
     Indication: ATRIAL FIBRILLATION
     Route: 048
     Dates: start: 20190913

REACTIONS (1)
  - Atrial fibrillation [None]

NARRATIVE: CASE EVENT DATE: 20210728
